FAERS Safety Report 5851783-5 (Version None)
Quarter: 2008Q3

REPORT INFORMATION
  Report Type: 
  Country: None (occurrence: None)
  Receive Date: 20080811
  Receipt Date: 20080513
  Transmission Date: 20090109
  Serious: Yes (Other)
  Sender: FDA-Public Use
  Company Number: LIP08002

PATIENT
  Sex: Female

DRUGS (3)
  1. LIPOFEN [Suspect]
     Indication: DYSLIPIDAEMIA
     Dosage: 150MG DAILY ORAL 047
     Route: 048
     Dates: start: 20080201
  2. HIGH BLOOD PRESSURE MEDICINE [Concomitant]
  3. LOPRESSOR AND MONOPRIL [Concomitant]

REACTIONS (3)
  - ARTHRALGIA [None]
  - FALL [None]
  - PAIN IN EXTREMITY [None]
